FAERS Safety Report 8641918 (Version 4)
Quarter: 2012Q4

REPORT INFORMATION
  Report Type: 
  Country: US (occurrence: US)
  Receive Date: 20120628
  Receipt Date: 20121218
  Transmission Date: 20130627
  Serious: Yes (Other)
  Sender: FDA-Public Use
  Company Number: US-ELI_LILLY_AND_COMPANY-US201206007024

PATIENT
  Age: 51 Year
  Sex: Female
  Weight: 49.89 kg

DRUGS (3)
  1. FORTEO [Suspect]
     Indication: OSTEOPOROSIS
     Dosage: 20 ug, qd
     Dates: start: 20120618
  2. FORTEO [Suspect]
     Dosage: 20 ug, qd
     Dates: start: 20121029
  3. FORTEO [Suspect]
     Dosage: 20 ug, qod
     Dates: start: 20121128

REACTIONS (17)
  - Syncope [Recovering/Resolving]
  - Pulse abnormal [Recovering/Resolving]
  - Hypotension [Recovering/Resolving]
  - Cold sweat [Recovering/Resolving]
  - Hypopnoea [Recovering/Resolving]
  - Feeling hot [Recovering/Resolving]
  - Gastrointestinal motility disorder [Recovering/Resolving]
  - Back pain [Recovering/Resolving]
  - Asthenia [Unknown]
  - Decreased appetite [Recovering/Resolving]
  - Dysgeusia [Recovering/Resolving]
  - Gastrointestinal viral infection [Unknown]
  - Drug prescribing error [Unknown]
  - Asthenia [Recovering/Resolving]
  - Accidental overdose [Unknown]
  - Nausea [Recovering/Resolving]
  - Nausea [Recovering/Resolving]
